FAERS Safety Report 19116944 (Version 1)
Quarter: 2021Q2

REPORT INFORMATION
  Report Type: Spontaneous
  Country: US (occurrence: US)
  Receive Date: 20210410
  Receipt Date: 20210410
  Transmission Date: 20210717
  Serious: No
  Sender: FDA-Public Use
  Company Number: NVSC2021US077172

PATIENT
  Sex: Female
  Weight: 60 kg

DRUGS (1)
  1. PIQRAY [Suspect]
     Active Substance: ALPELISIB
     Indication: BREAST CANCER
     Dosage: 300 MG, QD (2X150 MG) 56
     Route: 048
     Dates: start: 20191018

REACTIONS (1)
  - Fatigue [Unknown]
